FAERS Safety Report 22366153 (Version 1)
Quarter: 2023Q2

REPORT INFORMATION
  Report Type: Spontaneous
  Country: US (occurrence: US)
  Receive Date: 20230525
  Receipt Date: 20230525
  Transmission Date: 20230722
  Serious: No
  Sender: FDA-Public Use
  Company Number: US-INCYTE CORPORATION-2023IN005123

PATIENT

DRUGS (1)
  1. JAKAFI [Suspect]
     Active Substance: RUXOLITINIB
     Dosage: 10 MILLIGRAM, BID
     Route: 048
     Dates: start: 202305

REACTIONS (6)
  - Product dose omission in error [Unknown]
  - Skin papilloma [Unknown]
  - Dry skin [Unknown]
  - Pruritus [Unknown]
  - Sensitive skin [Unknown]
  - Rash [Unknown]

NARRATIVE: CASE EVENT DATE: 20230510
